FAERS Safety Report 8116078-8 (Version None)
Quarter: 2012Q1

REPORT INFORMATION
  Report Type: 
  Country: None (occurrence: None)
  Receive Date: 20120206
  Receipt Date: 20120201
  Transmission Date: 20120608
  Serious: Yes (Other)
  Sender: FDA-Public Use
  Company Number: US-PFIZER INC-2012027867

PATIENT
  Sex: Female

DRUGS (3)
  1. METOPROLOL TARTRATE [Concomitant]
     Dosage: 50 MG, 2X/DAY
     Route: 048
  2. MIRALAX [Concomitant]
     Dosage: AS DIRECTED
  3. NORVASC [Suspect]
     Dosage: 10 MG, DAILY
     Route: 048

REACTIONS (26)
  - CONJUNCTIVAL HAEMORRHAGE [None]
  - OSTEOARTHRITIS [None]
  - BACK PAIN [None]
  - DYSAESTHESIA [None]
  - OBESITY [None]
  - CONSTIPATION [None]
  - PAIN IN EXTREMITY [None]
  - HEADACHE [None]
  - CONGENITAL NAEVUS [None]
  - NAUSEA [None]
  - CHEST PAIN [None]
  - OTITIS EXTERNA [None]
  - LIPOMA [None]
  - OEDEMA PERIPHERAL [None]
  - RHINITIS ALLERGIC [None]
  - INTERVERTEBRAL DISC DISORDER [None]
  - HYPERCHOLESTEROLAEMIA [None]
  - GASTROOESOPHAGEAL REFLUX DISEASE [None]
  - DIZZINESS [None]
  - CYSTITIS [None]
  - NECK PAIN [None]
  - OVERWEIGHT [None]
  - INSOMNIA [None]
  - MUSCLE STRAIN [None]
  - HYPERTENSION [None]
  - ARTHRALGIA [None]
